FAERS Safety Report 6008224-7 (Version None)
Quarter: 2008Q4

REPORT INFORMATION
  Report Type: 
  Country: None (occurrence: None)
  Receive Date: 20081217
  Receipt Date: 20080728
  Transmission Date: 20090506
  Serious: No
  Sender: FDA-Public Use
  Company Number: US-ASTRAZENECA-2008UW15605

PATIENT
  Age: 64 Year
  Sex: Female
  Weight: 78 kg

DRUGS (8)
  1. CRESTOR [Suspect]
     Indication: BLOOD CHOLESTEROL INCREASED
     Route: 048
     Dates: start: 20080101
  2. NEXIUM [Concomitant]
     Route: 048
  3. FUROSEMIDE [Concomitant]
  4. SYNTHROID [Concomitant]
     Dosage: .075 MG ONCE DAILY
  5. LISINOPRIL AND HYDROCHLOROTHIAZIDE [Concomitant]
     Dosage: 20/12.5 ONCE DAILY
  6. CARVEDIOLOL [Concomitant]
  7. AMLODIPINE [Concomitant]
  8. PAROXETINE HCL [Concomitant]

REACTIONS (2)
  - BACK PAIN [None]
  - WEIGHT DECREASED [None]
